FAERS Safety Report 16791358 (Version 2)
Quarter: 2019Q3

REPORT INFORMATION
  Report Type: Spontaneous
  Country: AU (occurrence: AU)
  Receive Date: 20190910
  Receipt Date: 20190917
  Transmission Date: 20191005
  Serious: Yes (Death, Hospitalization)
  Sender: FDA-Public Use
  Company Number: AU-ACTELION-A-CH2019-195315

PATIENT
  Age: 71 Year
  Sex: Female
  Weight: 62 kg

DRUGS (26)
  1. COLCHICINE. [Concomitant]
     Active Substance: COLCHICINE
     Dosage: 1000 MCG, OD
  2. PARACETAMOL [Concomitant]
     Active Substance: ACETAMINOPHEN
     Dosage: 1330 DF, TID
     Route: 048
  3. SPIRONOLACTONE. [Concomitant]
     Active Substance: SPIRONOLACTONE
     Dosage: 150 MG, OD
  4. TADALAFIL. [Suspect]
     Active Substance: TADALAFIL
     Indication: PULMONARY ARTERIAL HYPERTENSION
     Dosage: 20 MG, BID
     Route: 048
     Dates: start: 2019, end: 20190826
  5. TADALAFIL. [Suspect]
     Active Substance: TADALAFIL
     Dosage: 40 MG, QD
     Route: 048
     Dates: start: 20160303
  6. NORETHISTERONE [Concomitant]
     Active Substance: NORETHINDRONE
     Dosage: 0.5 DF, OD
  7. MOVICOL [Concomitant]
     Active Substance: POLYETHYLENE GLYCOL 3350\POTASSIUM CHLORIDE\SODIUM BICARBONATE\SODIUM CHLORIDE
     Dosage: 2 DF, QD
     Route: 048
  8. PREDNISOLONE. [Concomitant]
     Active Substance: PREDNISOLONE
     Dosage: 10 MG, OD
     Route: 048
  9. BARDOXOLONE METHYL [Concomitant]
     Active Substance: BARDOXOLONE METHYL
     Dosage: 10 MG, OD
     Route: 048
  10. BUPRENORPHINE. [Concomitant]
     Active Substance: BUPRENORPHINE
     Dosage: 200 MCG, PER HOUR, ONCE A WEEK
     Route: 062
  11. KENACOMB [Concomitant]
     Dosage: 1 DF, BID
     Route: 003
  12. PHOSPHORUS [Concomitant]
     Active Substance: PHOSPHORUS
     Dosage: 500 MG, BID
     Route: 048
  13. POTASSIUM CHLORIDE. [Concomitant]
     Active Substance: POTASSIUM CHLORIDE
     Dosage: 600 MG, OD
  14. VITAMINORUM [Concomitant]
     Dosage: 1 DF, OD
  15. URSODEOXYCHOLIC ACID [Concomitant]
     Active Substance: URSODIOL
     Dosage: 500 MG, OD
  16. FUROSEMIDE. [Concomitant]
     Active Substance: FUROSEMIDE
     Dosage: 40 MG, OD
  17. OPSUMIT [Suspect]
     Active Substance: MACITENTAN
     Indication: PULMONARY ARTERIAL HYPERTENSION
     Dosage: 10 MG, QD
     Route: 048
     Dates: start: 20141107, end: 20190902
  18. ESOMEPRAZOLE. [Concomitant]
     Active Substance: ESOMEPRAZOLE MAGNESIUM
     Dosage: 20 MG, OD
  19. ESTRADIOL. [Concomitant]
     Active Substance: ESTRADIOL
     Dosage: 50 MCG, QD
     Route: 062
  20. MAGNESIUM [Concomitant]
     Active Substance: MAGNESIUM
     Dosage: 1000 MG, BID
  21. SYSTANE LUBRICANT [Concomitant]
     Active Substance: POLYETHYLENE GLYCOL 400\PROPYLENE GLYCOL
     Dosage: 1 DF, QID
  22. PREGABALIN. [Concomitant]
     Active Substance: PREGABALIN
     Dosage: 75MG AM, 50MG PM
  23. ALLOPURINOL. [Concomitant]
     Active Substance: ALLOPURINOL
     Dosage: 300 MG, OD
     Route: 048
  24. COLCHICINE. [Concomitant]
     Active Substance: COLCHICINE
     Dosage: 500 MCG, OD
  25. DENOSUMAB [Concomitant]
     Active Substance: DENOSUMAB
     Dosage: 60 MG, EVERY 6 MONTHS
  26. MAGNESIUM [Concomitant]
     Active Substance: MAGNESIUM
     Dosage: 500 MG, OD
     Route: 048

REACTIONS (13)
  - Lethargy [Fatal]
  - Hypotension [Fatal]
  - Respiratory distress [Unknown]
  - Pyrexia [Fatal]
  - Mastoiditis [Recovered/Resolved]
  - Clostridium difficile colitis [Fatal]
  - Pneumonia [Unknown]
  - Septic shock [Fatal]
  - Otitis media [Recovered/Resolved]
  - Pulmonary oedema [Unknown]
  - Meningitis haemophilus [Recovered/Resolved]
  - Haemophilus bacteraemia [Recovered/Resolved]
  - Oxygen consumption increased [Unknown]

NARRATIVE: CASE EVENT DATE: 201908
